FAERS Safety Report 23485701 (Version 1)
Quarter: 2024Q1

REPORT INFORMATION
  Report Type: Spontaneous
  Country: KR (occurrence: None)
  Receive Date: 20240206
  Receipt Date: 20240206
  Transmission Date: 20240410
  Serious: Yes (Other)
  Sender: FDA-Public Use
  Company Number: 2024A024456

PATIENT
  Age: 12 Year
  Sex: Male

DRUGS (1)
  1. NEXIUM I.V. [Suspect]
     Active Substance: ESOMEPRAZOLE SODIUM
     Indication: Haemophagocytic lymphohistiocytosis
     Route: 042
     Dates: start: 20220123, end: 20220128

REACTIONS (3)
  - Electrocardiogram QT prolonged [Recovering/Resolving]
  - Bradycardia [Recovering/Resolving]
  - Palpitations [Recovering/Resolving]

NARRATIVE: CASE EVENT DATE: 20220127
